FAERS Safety Report 26070641 (Version 1)
Quarter: 2025Q4

REPORT INFORMATION
  Report Type: Spontaneous
  Country: EU (occurrence: EU)
  Receive Date: 20251120
  Receipt Date: 20251120
  Transmission Date: 20260117
  Serious: Yes (Hospitalization)
  Sender: NOVO NORDISK
  Company Number: None

PATIENT
  Age: 76 Year
  Sex: Male
  Weight: 90 kg

DRUGS (2)
  1. SAXENDA [Suspect]
     Active Substance: LIRAGLUTIDE
     Indication: Weight control
     Dosage: 6 MG/ML
     Dates: start: 20250403, end: 20251007
  2. RUPAFIN [Concomitant]
     Active Substance: RUPATADINE FUMARATE
     Indication: Product used for unknown indication
     Dosage: 10 MG
     Route: 048

REACTIONS (3)
  - Amnesia [Not Recovered/Not Resolved]
  - Confusional state [Not Recovered/Not Resolved]
  - Pseudohypoglycaemia [Not Recovered/Not Resolved]
